FAERS Safety Report 5292372-3 (Version None)
Quarter: 2007Q2

REPORT INFORMATION
  Report Type: 
  Country: None (occurrence: None)
  Receive Date: 20070410
  Receipt Date: 20070131
  Transmission Date: 20071010
  Serious: Yes (Hospitalization)
  Sender: FDA-Public Use
  Company Number: US-AMGEN-US209203

PATIENT
  Sex: Male

DRUGS (1)
  1. ARANESP [Suspect]
     Indication: DIALYSIS
     Route: 042
     Dates: start: 20040101

REACTIONS (6)
  - HAEMOGLOBIN DECREASED [None]
  - MONOCLONAL IMMUNOGLOBULIN PRESENT [None]
  - OSTEOMYELITIS [None]
  - SEPSIS [None]
  - WOUND INFECTION [None]
  - WOUND SEPSIS [None]
